FAERS Safety Report 14109164 (Version 2)
Quarter: 2018Q2

REPORT INFORMATION
  Report Type: Spontaneous
  Country: US (occurrence: US)
  Receive Date: 20171019
  Receipt Date: 20180424
  Transmission Date: 20180711
  Serious: No
  Sender: FDA-Public Use
  Company Number: US-OTSUKA-2017_021479

PATIENT
  Age: 52 Year
  Sex: Male

DRUGS (2)
  1. REXULTI [Suspect]
     Active Substance: BREXPIPRAZOLE
     Dosage: 1 MG, QD
     Route: 065
     Dates: start: 201709, end: 201709
  2. REXULTI [Suspect]
     Active Substance: BREXPIPRAZOLE
     Indication: MAJOR DEPRESSION
     Dosage: 2 MG, QD
     Route: 065
     Dates: start: 201709, end: 201709

REACTIONS (2)
  - Tardive dyskinesia [Recovering/Resolving]
  - Trismus [Not Recovered/Not Resolved]

NARRATIVE: CASE EVENT DATE: 201709
